FAERS Safety Report 4283553-6 (Version None)
Quarter: 2004Q1

REPORT INFORMATION
  Report Type: 
  Country: None (occurrence: None)
  Receive Date: 20040121
  Receipt Date: 20031016
  Transmission Date: 20041129
  Serious: Yes (Hospitalization)
  Sender: FDA-Public Use
  Company Number: A03200302471

PATIENT
  Sex: Female

DRUGS (2)
  1. PLAVIX [Suspect]
     Dosage: NI UNK- ORAL
     Route: 048
     Dates: start: 20030101
  2. ACETYLSALICYLIC ACID [Concomitant]

REACTIONS (5)
  - ASTHENIA [None]
  - DIZZINESS [None]
  - LOOSE STOOLS [None]
  - PYREXIA [None]
  - RECTAL HAEMORRHAGE [None]
